FAERS Safety Report 10386026 (Version 1)
Quarter: 2014Q1

REPORT INFORMATION
  Report Type: Spontaneous
  Country: US (occurrence: None)
  Receive Date: 20140306
  Receipt Date: 20140306
  Transmission Date: 20141002
  Serious: Yes (Other)
  Sender: FDA-Public Use
  Company Number: 163-21880-13040473

PATIENT
  Age: 55 Year
  Sex: Female
  Weight: 78.93 kg

DRUGS (4)
  1. REVLIMID (LENALIDOMIDE) (25 MILLIGRAM, CAPSULES) [Suspect]
     Indication: CASTLEMAN^S DISEASE
     Route: 048
     Dates: start: 200910, end: 2010
  2. ASPIR-TRIN (ACETYLSALICYLIC ACID) [Concomitant]
  3. SYMICORT (CYMBICORT TURBUHALER DRACO) [Concomitant]
  4. THYROID MEDICATION (UNSPECIFIED TRADITIONAL MEDICINE) [Concomitant]

REACTIONS (1)
  - Alopecia [None]
